FAERS Safety Report 7125489-9 (Version None)
Quarter: 2010Q4

REPORT INFORMATION
  Report Type: 
  Country: None (occurrence: None)
  Receive Date: 20101129
  Receipt Date: 20101116
  Transmission Date: 20110411
  Serious: Yes (Other)
  Sender: FDA-Public Use
  Company Number: CA-ROCHE-738541

PATIENT
  Age: 81 Year
  Sex: Female

DRUGS (6)
  1. XELODA [Suspect]
     Indication: COLORECTAL CANCER
     Route: 048
     Dates: start: 20100422
  2. XELODA [Suspect]
     Dosage: DOSE INCREASED
     Route: 048
     Dates: start: 20100513
  3. XELODA [Suspect]
     Dosage: DOSE DECREASED
     Route: 048
     Dates: start: 20100603, end: 20100609
  4. XELODA [Suspect]
     Route: 048
     Dates: start: 20100617, end: 20100907
  5. COUMADIN [Suspect]
     Indication: ATRIAL FIBRILLATION
     Route: 065
     Dates: end: 20100603
  6. FRAGMIN [Concomitant]
     Indication: ATRIAL FIBRILLATION
     Route: 058
     Dates: start: 20100601

REACTIONS (6)
  - DIARRHOEA [None]
  - FALL [None]
  - FOOT FRACTURE [None]
  - INTERNATIONAL NORMALISED RATIO ABNORMAL [None]
  - PALMAR-PLANTAR ERYTHRODYSAESTHESIA SYNDROME [None]
  - WOUND NECROSIS [None]
